FAERS Safety Report 5265583-0 (Version None)
Quarter: 2007Q1

REPORT INFORMATION
  Report Type: 
  Country: None (occurrence: None)
  Receive Date: 20061213
  Receipt Date: 20040428
  Transmission Date: 20070707
  Serious: Yes (Other)
  Sender: FDA-Public Use
  Company Number: 2004UW08615

PATIENT
  Age: 65 Year
  Sex: Female

DRUGS (3)
  1. IRESSA [Suspect]
     Dates: start: 20030101
  2. IRESSA [Suspect]
  3. IRESSA [Suspect]

REACTIONS (1)
  - VASCULITIS [None]
